FAERS Safety Report 21163787 (Version 5)
Quarter: 2022Q4

REPORT INFORMATION
  Report Type: Spontaneous
  Country: DE (occurrence: DE)
  Receive Date: 20220803
  Receipt Date: 20221207
  Transmission Date: 20230113
  Serious: Yes (Death, Hospitalization)
  Sender: FDA-Public Use
  Company Number: DE-NOVARTISPH-NVSC2022DE172733

PATIENT
  Age: 75 Year
  Sex: Male
  Weight: 102 kg

DRUGS (8)
  1. PEMETREXED [Suspect]
     Active Substance: PEMETREXED
     Indication: Non-small cell lung cancer
     Dosage: 600 MG, Q3W (600 MG, EVERY 3 WEEKS)
     Route: 042
     Dates: start: 20211208, end: 20220105
  2. CARBOPLATIN [Suspect]
     Active Substance: CARBOPLATIN
     Indication: Non-small cell lung cancer
     Dosage: 250 MG, Q3W (250 MG, EVERY 3 WEEKS)
     Route: 042
     Dates: start: 20211208, end: 20220105
  3. PEMBROLIZUMAB [Suspect]
     Active Substance: PEMBROLIZUMAB
     Indication: Non-small cell lung cancer
     Dosage: 200 MG, Q3W (200 MG, EVERY 3 WEEKS)
     Route: 042
     Dates: start: 20211208, end: 20220105
  4. ALOXI [Concomitant]
     Active Substance: PALONOSETRON HYDROCHLORIDE
     Indication: Product used for unknown indication
     Dosage: 5 MG, CYCLIC (5 MG, CYCLICAL)
     Route: 042
     Dates: start: 20211208, end: 20220105
  5. EMEND [Concomitant]
     Active Substance: APREPITANT
     Indication: Product used for unknown indication
     Dosage: 80 MG, CYCLIC (80 MG, CYCLICAL)
     Route: 042
     Dates: start: 20211208, end: 20220105
  6. GRANULOCYTE COLONY-STIMULATING FACTOR NOS [Concomitant]
     Active Substance: GRANULOCYTE COLONY-STIMULATING FACTOR NOS
     Indication: Product used for unknown indication
     Dosage: 30 MG, CYCLIC (30 MG, CYCLICAL)
     Route: 058
     Dates: start: 20211210, end: 202201
  7. ELIQUIS [Concomitant]
     Active Substance: APIXABAN
     Indication: Atrial fibrillation
     Dosage: 2.5 MG, QD (2.5 MG, DAILY)
     Route: 048
  8. DEXAMETHASONE [Concomitant]
     Active Substance: DEXAMETHASONE
     Indication: Product used for unknown indication
     Dosage: 0.5 MG/ 1.5 MG/ 4 MG/ 8 MG, CYCLICAL
     Route: 042

REACTIONS (5)
  - Cardiac failure [Fatal]
  - Acute kidney injury [Fatal]
  - Neutropenic sepsis [Fatal]
  - Pancytopenia [Fatal]
  - Pancytopenia [Recovered/Resolved]

NARRATIVE: CASE EVENT DATE: 20211221
